FAERS Safety Report 23355462 (Version 1)
Quarter: 2024Q1

REPORT INFORMATION
  Report Type: Spontaneous
  Country: US (occurrence: US)
  Receive Date: 20240102
  Receipt Date: 20240102
  Transmission Date: 20240409
  Serious: No
  Sender: FDA-Public Use
  Company Number: US-SA-SAC20231227000222

PATIENT
  Sex: Female

DRUGS (1)
  1. THYROGEN [Suspect]
     Active Substance: THYROTROPIN ALFA
     Indication: Osteoarthritis
     Dosage: 0.9 MG, QD
     Route: 030

REACTIONS (2)
  - Pain [Unknown]
  - Product use in unapproved indication [Unknown]
